FAERS Safety Report 19674404 (Version 1)
Quarter: 2021Q3

REPORT INFORMATION
  Report Type: Spontaneous
  Country: PL (occurrence: PL)
  Receive Date: 20210809
  Receipt Date: 20210809
  Transmission Date: 20211014
  Serious: Yes (Other)
  Sender: FDA-Public Use
  Company Number: PL-AUROBINDO-AUR-APL-2021-033780

PATIENT
  Age: 66 Year
  Sex: Female

DRUGS (3)
  1. PERINDOPRIL [Concomitant]
     Active Substance: PERINDOPRIL
     Indication: PRODUCT USED FOR UNKNOWN INDICATION
     Dosage: UNK (5 MG)
     Route: 065
  2. AMLODIPINE [Concomitant]
     Active Substance: AMLODIPINE BESYLATE
     Indication: PRODUCT USED FOR UNKNOWN INDICATION
     Dosage: UNK (5 MG)
     Route: 065
  3. PARACETAMOL [Suspect]
     Active Substance: ACETAMINOPHEN
     Indication: BACK PAIN
     Dosage: UNK (2?4 GRAMS/DAY)
     Route: 048

REACTIONS (4)
  - Blood bilirubin increased [Recovering/Resolving]
  - Aspartate aminotransferase increased [Recovering/Resolving]
  - Liver tenderness [Recovering/Resolving]
  - Alanine aminotransferase increased [Recovering/Resolving]
